FAERS Safety Report 8045999-X (Version None)
Quarter: 2012Q1

REPORT INFORMATION
  Report Type: 
  Country: None (occurrence: None)
  Receive Date: 20120113
  Receipt Date: 20120110
  Transmission Date: 20120608
  Serious: No
  Sender: FDA-Public Use
  Company Number: US-PFIZER INC-2012008447

PATIENT
  Sex: Female
  Weight: 52.2 kg

DRUGS (2)
  1. PREMARIN [Suspect]
     Indication: HOT FLUSH
     Dosage: UNK
     Route: 048
  2. VITAMIN TAB [Concomitant]
     Dosage: UNK,2X/DAY
     Route: 048

REACTIONS (1)
  - WEIGHT DECREASED [None]
